FAERS Safety Report 7396517-0 (Version None)
Quarter: 2011Q2

REPORT INFORMATION
  Report Type: 
  Country: None (occurrence: None)
  Receive Date: 20110406
  Receipt Date: 20110330
  Transmission Date: 20111010
  Serious: Yes (Other)
  Sender: FDA-Public Use
  Company Number: BE-BRISTOL-MYERS SQUIBB COMPANY-15646987

PATIENT
  Age: 68 Year
  Sex: Male
  Weight: 73 kg

DRUGS (3)
  1. PLATINOL [Suspect]
     Indication: NON-SMALL CELL LUNG CANCER
     Dosage: 4JAN11-ONG,15-15MAR11(33MG).LAST DOSE ON 15MAR.NO OF INFUSIONS:4.RECEIVED 33.75MG INSTEAD OF 135MG
     Route: 065
     Dates: start: 20110104, end: 20110315
  2. NECITUMUMAB [Suspect]
     Indication: NON-SMALL CELL LUNG CANCER
     Dosage: LIQUID. LAST DOSE ON 15MAR2011.NO OF INFUSIONS:7
     Route: 065
     Dates: start: 20110104
  3. GEMZAR [Suspect]
     Indication: NON-SMALL CELL LUNG CANCER
     Dosage: LAST DOSE ON 15MAR2011.NO OF INFUSIONS:7
     Route: 065
     Dates: start: 20110104

REACTIONS (1)
  - DRUG DISPENSING ERROR [None]
